FAERS Safety Report 6829804-2 (Version None)
Quarter: 2010Q3

REPORT INFORMATION
  Report Type: 
  Country: None (occurrence: None)
  Receive Date: 20100709
  Receipt Date: 20090615
  Transmission Date: 20110219
  Serious: No
  Sender: FDA-Public Use
  Company Number: US-PFIZER INC-2007015002

PATIENT
  Sex: Female
  Weight: 70.295 kg

DRUGS (8)
  1. CHANTIX [Suspect]
     Indication: SMOKING CESSATION THERAPY
     Dosage: 1 MG, 2X/DAY
     Dates: start: 20070201, end: 20090101
  2. CLONIDINE [Concomitant]
  3. LISINOPRIL [Concomitant]
  4. NIFEDIPINE [Concomitant]
  5. FUROSEMIDE [Concomitant]
  6. METOPROLOL [Concomitant]
  7. ACETYLSALICYLIC ACID [Concomitant]
  8. NORVASC [Concomitant]
     Dosage: UNK

REACTIONS (2)
  - ABDOMINAL PAIN UPPER [None]
  - NAUSEA [None]
